FAERS Safety Report 22628477 (Version 1)
Quarter: 2023Q2

REPORT INFORMATION
  Report Type: Spontaneous
  Country: ES (occurrence: ES)
  Receive Date: 20230622
  Receipt Date: 20230622
  Transmission Date: 20230721
  Serious: Yes (Other)
  Sender: FDA-Public Use
  Company Number: None

PATIENT
  Age: 76 Year
  Sex: Male

DRUGS (13)
  1. MINITRAN [Suspect]
     Active Substance: NITROGLYCERIN
     Indication: Angina pectoris
     Dosage: 5.0 MG EVERY 24 HOURS
     Route: 061
     Dates: start: 20230525
  2. PENTOXIFYLLINE [Concomitant]
     Active Substance: PENTOXIFYLLINE
     Indication: Product used for unknown indication
     Dosage: 40 MILLIGRAM
     Route: 048
     Dates: start: 20120522
  3. HYDROCHLOROTHIAZIDE\OLMESARTAN MEDOXOMIL [Concomitant]
     Active Substance: HYDROCHLOROTHIAZIDE\OLMESARTAN MEDOXOMIL
     Indication: Hypertension
     Dosage: 40 MILLIGRAM
     Route: 048
     Dates: start: 20220810
  4. KETOCONAZOL CINFA [Concomitant]
     Indication: Product used for unknown indication
     Dosage: 1.0 APLIC EVERY 12 HOURS
     Route: 061
     Dates: start: 20111021
  5. FLUTICASONE PROPIONATE\SALMETEROL XINAFOATE [Concomitant]
     Active Substance: FLUTICASONE PROPIONATE\SALMETEROL XINAFOATE
     Indication: Bronchitis chronic
     Dosage: 1.0 PUFF EVERY 12 HOURS
     Route: 065
     Dates: start: 20140509
  6. ATORVASTATIN [Concomitant]
     Active Substance: ATORVASTATIN
     Indication: Angina pectoris
     Dosage: 40.0 MG CE
     Route: 048
     Dates: start: 20230524
  7. TRINISPRAY [Concomitant]
     Indication: Angina pectoris
     Dosage: 0.4 MG
     Route: 060
     Dates: start: 20230525, end: 20230525
  8. ASPIRIN [Concomitant]
     Active Substance: ASPIRIN
     Indication: Product used for unknown indication
     Dosage: 100.0 MG DECE
     Route: 048
     Dates: start: 20091110
  9. RISEDRONATE SODIUM [Concomitant]
     Active Substance: RISEDRONATE SODIUM
     Indication: Cerebellar ataxia
     Dosage: 150.0 MG EVERY 30 DAYS
     Route: 048
     Dates: start: 20200813
  10. FLUTICASONE PROPIONATE [Concomitant]
     Active Substance: FLUTICASONE PROPIONATE
     Indication: Bronchitis
     Dosage: 100.0 MCG EVERY 24 HOURS
     Route: 045
     Dates: start: 20130529
  11. BISOPROLOL [Concomitant]
     Active Substance: BISOPROLOL
     Indication: Angina pectoris
     Dosage: 2.5 MG CE
     Route: 048
     Dates: start: 20230524
  12. PARACETAMOL CINFA [Concomitant]
     Indication: Arthralgia
     Dosage: 1.0 G EVERY 8 HOURS
     Route: 048
     Dates: start: 20190305
  13. CALCIFEDIOL [Concomitant]
     Active Substance: CALCIFEDIOL
     Indication: Cerebellar ataxia
     Dosage: 0.266 MG EVERY 30 DAYS
     Route: 048
     Dates: start: 20200813

REACTIONS (2)
  - Vomiting [Recovered/Resolved]
  - Headache [Recovered/Resolved]

NARRATIVE: CASE EVENT DATE: 20230525
